FAERS Safety Report 7612385-3 (Version None)
Quarter: 2011Q3

REPORT INFORMATION
  Report Type: 
  Country: None (occurrence: None)
  Receive Date: 20110716
  Receipt Date: 20110705
  Transmission Date: 20111222
  Serious: Yes (Other)
  Sender: FDA-Public Use
  Company Number: US-RB-028852-11

PATIENT
  Sex: Female

DRUGS (4)
  1. PROVIGIL [Concomitant]
     Indication: NARCOLEPSY
  2. SUBOXONE [Suspect]
     Indication: DRUG DEPENDENCE
     Dosage: DOSAGE INFORMATION UNKNOWN- 16-20 MG DAILY
     Route: 060
     Dates: start: 20090101
  3. SERTALINE [Concomitant]
     Indication: DEPRESSION
  4. MIRALAX [Concomitant]
     Indication: CONSTIPATION
     Dosage: DOSING INFORMATION UNKNOWN

REACTIONS (2)
  - VAGINAL HAEMORRHAGE [None]
  - MATERNAL EXPOSURE DURING PREGNANCY [None]
